FAERS Safety Report 5670800-9 (Version None)
Quarter: 2008Q1

REPORT INFORMATION
  Report Type: 
  Country: None (occurrence: None)
  Receive Date: 20080318
  Receipt Date: 20080314
  Transmission Date: 20080703
  Serious: Yes (Death, Hospitalization)
  Sender: FDA-Public Use
  Company Number: US-JNJFOC-20080303803

PATIENT
  Age: 83 Year
  Sex: Female
  Weight: 49.9 kg

DRUGS (5)
  1. LEVAQUIN [Suspect]
     Indication: OSTEONECROSIS
     Route: 048
  2. FLAGYL [Concomitant]
     Indication: OSTEONECROSIS
     Route: 065
  3. TOPROL [Concomitant]
     Indication: HYPERTENSION
     Route: 065
  4. SYNTHROID [Concomitant]
     Indication: HYPOTHYROIDISM
     Route: 065
  5. TORESAMIDE [Concomitant]
     Indication: DIURETIC THERAPY
     Route: 065

REACTIONS (6)
  - CONVULSION [None]
  - DEATH [None]
  - DIZZINESS [None]
  - INSOMNIA [None]
  - PHARYNGOLARYNGEAL PAIN [None]
  - TREMOR [None]
